FAERS Safety Report 16723070 (Version 1)
Quarter: 2019Q3

REPORT INFORMATION
  Report Type: Spontaneous
  Country: US (occurrence: US)
  Receive Date: 20190821
  Receipt Date: 20190821
  Transmission Date: 20191005
  Serious: No
  Sender: FDA-Public Use
  Company Number: US-AMGEN INC.-USASP2019132343

PATIENT
  Age: 71 Year
  Sex: Female

DRUGS (20)
  1. GABAPENTIN. [Concomitant]
     Active Substance: GABAPENTIN
     Dosage: 300 MILLIGRAM
  2. FLUTICASON [Concomitant]
     Active Substance: FLUTICASONE
     Dosage: 2 SPRAYS IN EACH NOSTRIL
  3. OMEPRAZOLE. [Concomitant]
     Active Substance: OMEPRAZOLE
     Dosage: 20 MILLIGRAM
  4. OXYBUTININ ACCORD [Concomitant]
  5. ALERFEX [Concomitant]
  6. MELOXICAM. [Concomitant]
     Active Substance: MELOXICAM
  7. ESTROPIPATE. [Concomitant]
     Active Substance: ESTROPIPATE
  8. COENZYME Q10 [Concomitant]
     Active Substance: UBIDECARENONE
     Dosage: 500 MILLIGRAM
  9. MIRALAX [Concomitant]
     Active Substance: POLYETHYLENE GLYCOL 3350
  10. IPRATROPIUM BROMIDE. [Concomitant]
     Active Substance: IPRATROPIUM BROMIDE
     Dosage: 2 SPRAYS IN EACH NOSTRIL
  11. AIMOVIG [Suspect]
     Active Substance: ERENUMAB-AOOE
     Indication: MIGRAINE
     Route: 065
  12. DONEPEZIL. [Concomitant]
     Active Substance: DONEPEZIL
     Dosage: 10 MILLIGRAM
  13. DIVALPROEX SODIUM DISPENSING SOLUTIONS [Concomitant]
  14. MAGNESIUM OXIDE. [Concomitant]
     Active Substance: MAGNESIUM OXIDE
     Dosage: 400 MILLIGRAM
  15. LEVOTHYROXINE. [Concomitant]
     Active Substance: LEVOTHYROXINE
  16. ALBUTEROL SULFATE. [Concomitant]
     Active Substance: ALBUTEROL SULFATE
     Dosage: UNK UNK, AS NECESSARY
  17. BUPROPION. [Concomitant]
     Active Substance: BUPROPION
     Dosage: 150 MILLIGRAM
  18. LISINOPRIL. [Concomitant]
     Active Substance: LISINOPRIL
     Dosage: 5 MILLIGRAM
  19. VITAMIN B2 [RIBOFLAVIN] [Concomitant]
  20. SPIRIVA [Concomitant]
     Active Substance: TIOTROPIUM BROMIDE MONOHYDRATE

REACTIONS (2)
  - Drug ineffective [Unknown]
  - Tooth fracture [Recovering/Resolving]

NARRATIVE: CASE EVENT DATE: 2019
